FAERS Safety Report 21744734 (Version 1)
Quarter: 2022Q4

REPORT INFORMATION
  Report Type: Spontaneous
  Country: US (occurrence: US)
  Receive Date: 20221219
  Receipt Date: 20221219
  Transmission Date: 20230113
  Serious: Yes (Life-Threatening, Hospitalization)
  Sender: FDA-Public Use
  Company Number: US-STRIDES ARCOLAB LIMITED-2022SP016269

PATIENT
  Age: 6 Decade
  Sex: Female

DRUGS (10)
  1. PREDNISOLONE [Suspect]
     Active Substance: PREDNISOLONE
     Indication: Myasthenia gravis
     Dosage: 5 MILLIGRAM, UNKNOWN
     Route: 065
  2. PREDNISOLONE [Suspect]
     Active Substance: PREDNISOLONE
     Dosage: 60 MILLIGRAM PER DAY
     Route: 042
  3. PREDNISOLONE [Suspect]
     Active Substance: PREDNISOLONE
     Dosage: 30 MILLIGRAM PER DAY (DOSE WAS DECREASED TO 30MG DAILY)
     Route: 065
  4. AZATHIOPRINE [Suspect]
     Active Substance: AZATHIOPRINE
     Indication: Myasthenia gravis
     Dosage: 125 MILLIGRAM, UNKNOWN
     Route: 065
  5. METHYLPREDNISOLONE [Suspect]
     Active Substance: METHYLPREDNISOLONE
     Indication: Myositis
     Dosage: 1 MILLIGRAM/KILOGRAM PER DAY
     Route: 042
  6. METHYLPREDNISOLONE [Suspect]
     Active Substance: METHYLPREDNISOLONE
     Dosage: 1 GRAM PER DAY (RECEIVED ON HOSPITAL DAY 18 FOR 3 DAYS)
     Route: 042
  7. INFLUENZA VIRUS VACCINE [Concomitant]
     Active Substance: INFLUENZA VIRUS VACCINE
     Indication: Influenza immunisation
     Dosage: UNK
     Route: 065
  8. HYDROXYCHLOROQUINE [Concomitant]
     Active Substance: HYDROXYCHLOROQUINE
     Indication: Systemic lupus erythematosus
     Dosage: 200 MILLIGRAM PER DAY
     Route: 065
  9. CALCITONIN [Concomitant]
     Active Substance: CALCITONIN
     Indication: Hypercalcaemia
     Dosage: UNK
     Route: 065
  10. ZOLEDRONIC ACID [Concomitant]
     Active Substance: ZOLEDRONIC ACID
     Indication: Hypercalcaemia
     Dosage: UNK
     Route: 065

REACTIONS (9)
  - Diverticulitis [Recovered/Resolved]
  - Cytomegalovirus infection [Recovered/Resolved]
  - Cytomegalovirus viraemia [Recovered/Resolved]
  - Bacillus bacteraemia [Unknown]
  - Urinary tract infection bacterial [Unknown]
  - Escherichia infection [Unknown]
  - Abdominal abscess [Unknown]
  - Bacteraemia [Unknown]
  - Off label use [Unknown]
